FAERS Safety Report 9562055 (Version 1)
Quarter: 2013Q3

REPORT INFORMATION
  Report Type: Spontaneous
  Country: US (occurrence: US)
  Receive Date: 20130927
  Receipt Date: 20130927
  Transmission Date: 20140515
  Serious: Yes (Death, Hospitalization)
  Sender: FDA-Public Use
  Company Number: US-PFIZER INC-2013275656

PATIENT
  Age: 58 Year
  Sex: Male

DRUGS (1)
  1. VFEND [Suspect]
     Dosage: UNK

REACTIONS (1)
  - Myocardial infarction [Fatal]
